FAERS Safety Report 24995034 (Version 1)
Quarter: 2025Q1

REPORT INFORMATION
  Report Type: Spontaneous
  Country: US (occurrence: US)
  Receive Date: 20250221
  Receipt Date: 20250221
  Transmission Date: 20250409
  Serious: Yes (Death)
  Sender: MYLAN
  Company Number: US-MYLANLABS-2025M1014051

PATIENT
  Age: 54 Year
  Sex: Male

DRUGS (5)
  1. ETOPOSIDE [Suspect]
     Active Substance: ETOPOSIDE
     Indication: Neuroendocrine carcinoma metastatic
     Route: 065
  2. CARBOPLATIN [Suspect]
     Active Substance: CARBOPLATIN
     Indication: Neuroendocrine carcinoma metastatic
     Route: 065
  3. NIVOLUMAB [Suspect]
     Active Substance: NIVOLUMAB
     Indication: Neuroendocrine carcinoma metastatic
     Route: 065
  4. IPILIMUMAB [Suspect]
     Active Substance: IPILIMUMAB
     Indication: Neuroendocrine carcinoma metastatic
     Route: 065
  5. SELPERCATINIB [Suspect]
     Active Substance: SELPERCATINIB
     Indication: Neuroendocrine carcinoma metastatic
     Dosage: 160 MILLIGRAM, BID
     Route: 065

REACTIONS (2)
  - Drug resistance [Fatal]
  - Disease progression [Fatal]
